FAERS Safety Report 5545761-3 (Version None)
Quarter: 2007Q4

REPORT INFORMATION
  Report Type: 
  Country: None (occurrence: None)
  Receive Date: 20071211
  Receipt Date: 20071207
  Transmission Date: 20080405
  Serious: Yes (Death)
  Sender: FDA-Public Use
  Company Number: US-GENENTECH-245286

PATIENT
  Sex: Female

DRUGS (4)
  1. AVASTIN [Suspect]
     Indication: BREAST CANCER METASTATIC
     Dosage: UNK, DAYS 1+15
     Dates: start: 20061220, end: 20070228
  2. AVASTIN [Suspect]
     Dosage: 15 MG/KG, Q3W
     Dates: start: 20070314
  3. PACLITAXEL [Concomitant]
     Indication: BREAST CANCER METASTATIC
     Dosage: UNK, DAYS1,8,15
     Dates: start: 20061220, end: 20070228
  4. ABRAXANE [Concomitant]
     Indication: BREAST CANCER METASTATIC
     Dosage: 100 MG/M2, UNK
     Dates: start: 20070314, end: 20070411

REACTIONS (2)
  - HEPATIC CIRRHOSIS [None]
  - HEPATIC FAILURE [None]
